FAERS Safety Report 4557132-7 (Version None)
Quarter: 2005Q1

REPORT INFORMATION
  Report Type: 
  Country: None (occurrence: None)
  Receive Date: 20050119
  Receipt Date: 20050119
  Transmission Date: 20050727
  Serious: Yes (Hospitalization)
  Sender: FDA-Public Use
  Company Number: None

PATIENT
  Age: 59 Year
  Sex: Male
  Weight: 73.9363 kg

DRUGS (20)
  1. LISINOPRIL [Suspect]
     Indication: HYPERTENSION
     Dosage: 40MG   QDAY   ORAL
     Route: 048
     Dates: start: 19981120, end: 20041016
  2. LISINOPRIL [Suspect]
     Indication: PROPHYLAXIS
     Dosage: 40MG   QDAY   ORAL
     Route: 048
     Dates: start: 19981120, end: 20041016
  3. LISINOPRIL [Suspect]
     Indication: RENAL DISORDER
     Dosage: 40MG   QDAY   ORAL
     Route: 048
     Dates: start: 19981120, end: 20041016
  4. ASA/DIPYRIDAMOLE [Concomitant]
  5. METOCLOPRAMIDE [Concomitant]
  6. MAGNESIUM OXIDE [Concomitant]
  7. GABAPENTIN [Concomitant]
  8. DILTIAZEM [Concomitant]
  9. APAP TAB [Concomitant]
  10. TRAZODONE HCL [Concomitant]
  11. FLUOXETINE [Concomitant]
  12. TERAZOSIN [Concomitant]
  13. METORMIN [Concomitant]
  14. GLYBURIDE [Concomitant]
  15. BUPROPION HCL [Concomitant]
  16. SIMVASTATIN [Concomitant]
  17. HYDROCHLOROTHIAZIDE [Concomitant]
  18. DOCUSATE [Concomitant]
  19. SILDENAFIL [Concomitant]
  20. SENNA [Concomitant]

REACTIONS (2)
  - ANGIONEUROTIC OEDEMA [None]
  - DYSPNOEA [None]
